FAERS Safety Report 4583363-6 (Version None)
Quarter: 2005Q1

REPORT INFORMATION
  Report Type: 
  Country: None (occurrence: None)
  Receive Date: 20050125
  Receipt Date: 20041027
  Transmission Date: 20050727
  Serious: No
  Sender: FDA-Public Use
  Company Number: USA031051165

PATIENT
  Age: 78 Year
  Sex: Female
  Weight: 50 kg

DRUGS (10)
  1. FORTEO [Suspect]
     Indication: OSTEOPOROSIS
     Dosage: 20 UG/1 DAY
     Dates: start: 20031001
  2. COUMADIN [Concomitant]
  3. CALCIUM CARBONATE + VITAMIN D [Concomitant]
  4. IMDUR [Concomitant]
  5. CARTIA (DILTIAZEM HYDROCHLORIDE) [Concomitant]
  6. M.V.I. [Concomitant]
  7. OXYCONITIN (OXYCODONE HYDROCHLORIDE) [Concomitant]
  8. LIPITOR [Concomitant]
  9. RANITIDINE [Concomitant]
  10. LISINOPRIL AND HYDROCHLOROTHIAZIDE [Concomitant]

REACTIONS (2)
  - BREAST MICROCALCIFICATION [None]
  - CONTUSION [None]
